FAERS Safety Report 8872072 (Version 1)
Quarter: 2012Q4

REPORT INFORMATION
  Report Type: 
  Country: US (occurrence: US)
  Receive Date: 20121026
  Receipt Date: 20121026
  Transmission Date: 20130627
  Serious: No
  Sender: FDA-Public Use
  Company Number: US-AMGEN-USASP2012048833

PATIENT
  Age: 62 Year
  Sex: Female
  Weight: 72.56 kg

DRUGS (10)
  1. ENBREL [Suspect]
     Indication: PRODUCT USED FOR UNKNOWN INDICATION
     Dosage: 50 mg, qwk
  2. METHOTREXATE [Concomitant]
     Dosage: UNK
  3. TYLENOL WITH CODEIN #3 [Concomitant]
     Dosage: UNK
  4. ATENOLOL [Concomitant]
     Dosage: 50 mg, UNK
  5. CLINDAMYCIN [Concomitant]
     Dosage: 150 mg, UNK
  6. LORAZEPAM [Concomitant]
     Dosage: 1 mg, UNK
  7. OMEPRAZOLE [Concomitant]
     Dosage: 10 mg, UNK
  8. VENTOLIN                           /00139501/ [Concomitant]
     Dosage: HFA AER
  9. LEXAPRO [Concomitant]
     Dosage: 5 mg, UNK
  10. TYLENOL /00020001/ [Concomitant]
     Dosage: 325 mg, UNK

REACTIONS (3)
  - Aspartate aminotransferase increased [Unknown]
  - Alanine aminotransferase increased [Unknown]
  - Exposure to communicable disease [Unknown]
